FAERS Safety Report 4878909-4 (Version None)
Quarter: 2005Q4

REPORT INFORMATION
  Report Type: 
  Country: None (occurrence: None)
  Receive Date: 20051209
  Receipt Date: 20050503
  Transmission Date: 20060501
  Serious: Yes (Other)
  Sender: FDA-Public Use
  Company Number: USA-2003-0005429

PATIENT
  Age: 43 Year
  Sex: Male
  Weight: 80.7 kg

DRUGS (28)
  1. OXYCONTIN [Suspect]
     Indication: PAIN
     Dosage: 20 MG, ORAL
     Route: 048
     Dates: start: 19991001, end: 20030304
  2. OXYIR [Concomitant]
  3. CARISOPRODOL [Concomitant]
  4. VICODIN [Concomitant]
  5. AMOXICILLIN [Concomitant]
  6. HYDROXYZINE PAMOATE [Concomitant]
  7. AMBIEN [Concomitant]
  8. ZOLOFT [Concomitant]
  9. VIOXX [Concomitant]
  10. GUAIFENESIN [Concomitant]
  11. WARFARIN SODIUM [Concomitant]
  12. FERROUS SULFATE TAB [Concomitant]
  13. DOCUSATE SODIUM [Concomitant]
  14. RELAFEN [Concomitant]
  15. MULTIVITAMINS, PLAIN [Concomitant]
  16. VITAMIN E [Concomitant]
  17. ASCORBIC ACID [Concomitant]
  18. VITAMIN B COMPLEX CAP [Concomitant]
  19. VITAMIN B6 [Concomitant]
  20. MEPERIDINE HYDROCHLORIDE [Concomitant]
  21. MORPHINE [Concomitant]
  22. CEFAZOLIN [Concomitant]
  23. DIPHENHYDRAMINE [Concomitant]
  24. TRIAZOLAM [Concomitant]
  25. NIZATIDINE [Concomitant]
  26. TYLENOL [Concomitant]
  27. OXYCODONE HCL [Concomitant]
  28. ROXICODONE [Concomitant]

REACTIONS (18)
  - ANGER [None]
  - ANXIETY [None]
  - BENIGN PROSTATIC HYPERPLASIA [None]
  - CONSTIPATION [None]
  - DEPRESSION [None]
  - DRUG ABUSER [None]
  - DRUG DEPENDENCE [None]
  - DRUG INEFFECTIVE [None]
  - DRUG WITHDRAWAL SYNDROME [None]
  - DYSPNOEA [None]
  - EMOTIONAL DISTRESS [None]
  - FALL [None]
  - FEELING ABNORMAL [None]
  - HEADACHE [None]
  - LACERATION [None]
  - NERVOUSNESS [None]
  - PAIN [None]
  - PARAESTHESIA [None]
